FAERS Safety Report 7473091-1 (Version None)
Quarter: 2011Q2

REPORT INFORMATION
  Report Type: 
  Country: None (occurrence: None)
  Receive Date: 20110511
  Receipt Date: 20110509
  Transmission Date: 20111010
  Serious: Yes (Other)
  Sender: FDA-Public Use
  Company Number: TW-ROCHE-775887

PATIENT

DRUGS (4)
  1. OXALIPLATIN [Concomitant]
     Dosage: START DATE REPORTED AS: 2011.
  2. AVASTIN [Suspect]
     Dosage: START DATE REPORTED AS: 2011.
     Route: 042
  3. FLUOROURACIL [Concomitant]
     Dosage: START DATE REPORTED AS: 2011.
  4. LEUCOVORIN CALCIUM [Concomitant]
     Dosage: START DATE REPORTED AS: 2011.

REACTIONS (1)
  - CEREBROVASCULAR ACCIDENT [None]
